FAERS Safety Report 9056246 (Version 1)
Quarter: 2013Q1

REPORT INFORMATION
  Report Type: Spontaneous
  Country: US (occurrence: US)
  Receive Date: 20130205
  Receipt Date: 20130205
  Transmission Date: 20140127
  Serious: No
  Sender: FDA-Public Use
  Company Number: US-009507513-1302USA001571

PATIENT
  Age: 5 Year
  Sex: Male

DRUGS (3)
  1. MIRALAX [Suspect]
     Indication: PRODUCT USED FOR UNKNOWN INDICATION
     Dosage: UNK, QD
     Route: 048
     Dates: start: 20121207
  2. MIRALAX [Suspect]
     Indication: MEDICAL OBSERVATION
  3. ANTIMICROBIAL (UNSPECIFIED) [Concomitant]
     Indication: PRODUCT USED FOR UNKNOWN INDICATION
     Dosage: UNK, UNKNOWN
     Dates: start: 201212

REACTIONS (3)
  - Urticaria [Unknown]
  - Incorrect drug administration duration [Unknown]
  - Off label use [Unknown]
